FAERS Safety Report 16155309 (Version 23)
Quarter: 2024Q2

REPORT INFORMATION
  Report Type: Spontaneous
  Country: CA (occurrence: CA)
  Receive Date: 20190403
  Receipt Date: 20240417
  Transmission Date: 20240716
  Serious: Yes (Other)
  Sender: FDA-Public Use
  Company Number: CA-CELLTRION INC.-2018CA022170

PATIENT

DRUGS (41)
  1. INFLECTRA [Suspect]
     Active Substance: INFLIXIMAB-DYYB
     Indication: Colitis ulcerative
     Dosage: 500 MG, AT 0, 2, 6 WEEKS THEN EVERY 8 WEEKS/WEEK 0 DOSE
     Route: 042
     Dates: start: 20180704, end: 20180704
  2. INFLECTRA [Suspect]
     Active Substance: INFLIXIMAB-DYYB
     Dosage: 500 MG, AT 0, 2, 6 WEEKS THEN EVERY 8 WEEKS / (WEEK 2 DOSE)
     Route: 042
     Dates: start: 20180716, end: 20180716
  3. INFLECTRA [Suspect]
     Active Substance: INFLIXIMAB-DYYB
     Dosage: 500 MG, AT 0, 2, 6 WEEKS THEN EVERY 8 WEEKS/WEEK 6 DOSE
     Route: 042
     Dates: start: 20180817, end: 20180817
  4. INFLECTRA [Suspect]
     Active Substance: INFLIXIMAB-DYYB
     Dosage: 500 MG, AT 0, 2, 6 WEEKS THEN EVERY 8 WEEKS
     Route: 042
     Dates: start: 20181003
  5. INFLECTRA [Suspect]
     Active Substance: INFLIXIMAB-DYYB
     Dosage: 500 MG, AT 0, 2, 6 WEEKS THEN EVERY 8 WEEKS
     Route: 042
     Dates: start: 20181128
  6. INFLECTRA [Suspect]
     Active Substance: INFLIXIMAB-DYYB
     Dosage: 500 MG, AT 0, 2, 6 WEEKS THEN EVERY 8 WEEKS (EVERY 8 WEEKS)
     Route: 042
     Dates: start: 20181003, end: 20190123
  7. INFLECTRA [Suspect]
     Active Substance: INFLIXIMAB-DYYB
     Dosage: 500 MG, AT 0, 2, 6 WEEKS THEN EVERY 8 WEEKS
     Route: 042
     Dates: start: 20190123
  8. INFLECTRA [Suspect]
     Active Substance: INFLIXIMAB-DYYB
     Dosage: 8MG/KG, EVERY 8 WEEKS
     Route: 042
     Dates: start: 20190320, end: 20211026
  9. INFLECTRA [Suspect]
     Active Substance: INFLIXIMAB-DYYB
     Dosage: 8MG/KG, EVERY 8 WEEKS
     Route: 042
     Dates: start: 20190320
  10. INFLECTRA [Suspect]
     Active Substance: INFLIXIMAB-DYYB
     Dosage: 8MG/KG, EVERY 8 WEEKS
     Route: 042
     Dates: start: 20190320
  11. INFLECTRA [Suspect]
     Active Substance: INFLIXIMAB-DYYB
     Dosage: 8MG/KG, EVERY 8 WEEKS
     Route: 042
     Dates: start: 20190320
  12. INFLECTRA [Suspect]
     Active Substance: INFLIXIMAB-DYYB
     Dosage: 8MG/KG, EVERY 8 WEEKS
     Route: 042
     Dates: start: 20190514
  13. INFLECTRA [Suspect]
     Active Substance: INFLIXIMAB-DYYB
     Dosage: 8MG/KG, EVERY 8 WEEKS
     Route: 042
     Dates: start: 20190708
  14. INFLECTRA [Suspect]
     Active Substance: INFLIXIMAB-DYYB
     Dosage: 8MG/KG, EVERY 8 WEEKS
     Route: 042
     Dates: start: 20190903
  15. INFLECTRA [Suspect]
     Active Substance: INFLIXIMAB-DYYB
     Dosage: 8MG/KG, EVERY 8 WEEKS
     Route: 042
     Dates: start: 20191029
  16. INFLECTRA [Suspect]
     Active Substance: INFLIXIMAB-DYYB
     Dosage: 8MG/KG, EVERY 8 WEEKS
     Route: 042
     Dates: start: 20191224
  17. INFLECTRA [Suspect]
     Active Substance: INFLIXIMAB-DYYB
     Dosage: 8MG/KG, EVERY 8 WEEKS
     Route: 042
     Dates: start: 20191224
  18. INFLECTRA [Suspect]
     Active Substance: INFLIXIMAB-DYYB
     Dosage: 8MG/KG, EVERY 8 WEEKS
     Route: 042
     Dates: start: 20200218
  19. INFLECTRA [Suspect]
     Active Substance: INFLIXIMAB-DYYB
     Dosage: 8MG/KG, EVERY 8 WEEKS
     Route: 042
     Dates: start: 20200414
  20. INFLECTRA [Suspect]
     Active Substance: INFLIXIMAB-DYYB
     Dosage: 8MG/KG, EVERY 8 WEEKS
     Route: 042
     Dates: start: 20200609
  21. INFLECTRA [Suspect]
     Active Substance: INFLIXIMAB-DYYB
     Dosage: 8MG/KG, EVERY 8 WEEKS
     Route: 042
     Dates: start: 20200609
  22. INFLECTRA [Suspect]
     Active Substance: INFLIXIMAB-DYYB
     Dosage: 8MG/KG, EVERY 8 WEEKS
     Route: 042
     Dates: start: 20200804
  23. INFLECTRA [Suspect]
     Active Substance: INFLIXIMAB-DYYB
     Dosage: 8MG/KG, EVERY 8 WEEKS
     Route: 042
     Dates: start: 20200929
  24. INFLECTRA [Suspect]
     Active Substance: INFLIXIMAB-DYYB
     Dosage: 800 MG (8MG/KG), EVERY 8 WEEKS
     Route: 042
     Dates: start: 20201124
  25. INFLECTRA [Suspect]
     Active Substance: INFLIXIMAB-DYYB
     Dosage: 800 MG (8MG/KG), EVERY 8 WEEKS
     Route: 042
     Dates: start: 20210119
  26. INFLECTRA [Suspect]
     Active Substance: INFLIXIMAB-DYYB
     Dosage: 800 MG (8MG/KG), EVERY 8 WEEKS
     Route: 042
     Dates: start: 20210518
  27. INFLECTRA [Suspect]
     Active Substance: INFLIXIMAB-DYYB
     Dosage: 800 MG (8MG/KG), EVERY 8 WEEKS
     Route: 042
     Dates: start: 20210706
  28. INFLECTRA [Suspect]
     Active Substance: INFLIXIMAB-DYYB
     Dosage: 800 MG (8MG/KG), EVERY 8 WEEKS
     Route: 042
     Dates: start: 20210831
  29. INFLECTRA [Suspect]
     Active Substance: INFLIXIMAB-DYYB
     Dosage: 800 MG (8MG/KG), EVERY 8 WEEKS
     Route: 042
     Dates: start: 20211026
  30. INFLECTRA [Suspect]
     Active Substance: INFLIXIMAB-DYYB
     Dosage: 800 MG (8MG/KG), EVERY 6 WEEKS
     Route: 042
     Dates: start: 20211208
  31. INFLECTRA [Suspect]
     Active Substance: INFLIXIMAB-DYYB
     Dosage: 800 MG (8MG/KG), EVERY 8 WEEKS
     Route: 042
     Dates: start: 20220125
  32. INFLECTRA [Suspect]
     Active Substance: INFLIXIMAB-DYYB
     Dosage: 800 MG (8MG/KG), EVERY 6 WEEKS
     Route: 042
     Dates: start: 20220426
  33. INFLECTRA [Suspect]
     Active Substance: INFLIXIMAB-DYYB
     Dosage: 800 MG (8MG/KG), EVERY 6 WEEKS
     Route: 042
     Dates: start: 20220426
  34. INFLECTRA [Suspect]
     Active Substance: INFLIXIMAB-DYYB
     Dosage: 800 MG, EVERY 6 WEEKS
     Route: 042
     Dates: start: 20240305
  35. ASPIRIN [Concomitant]
     Active Substance: ASPIRIN
     Dosage: 80 MG
     Route: 065
  36. CALCIUM [Concomitant]
     Active Substance: CALCIUM
     Dosage: 1 DF
     Route: 065
  37. DUTASTERIDE [Concomitant]
     Active Substance: DUTASTERIDE
     Dosage: 1 DF
     Route: 065
  38. RAMIPRIL [Concomitant]
     Active Substance: RAMIPRIL
     Dosage: 1 DF
     Route: 065
  39. SOTALOL [Concomitant]
     Active Substance: SOTALOL
     Dosage: 1 DF
     Route: 065
  40. TAMSULOSIN [Concomitant]
     Active Substance: TAMSULOSIN
     Dosage: 1 DF
     Route: 065
  41. TEMAZEPAM [Concomitant]
     Active Substance: TEMAZEPAM
     Dosage: 1 DF
     Route: 065

REACTIONS (13)
  - Condition aggravated [Recovered/Resolved]
  - Cellulitis [Unknown]
  - Therapeutic response shortened [Unknown]
  - Blood pressure fluctuation [Unknown]
  - Psoriasis [Unknown]
  - Arthralgia [Unknown]
  - Blood pressure increased [Unknown]
  - Abscess [Unknown]
  - Heart rate decreased [Unknown]
  - Abdominal distension [Not Recovered/Not Resolved]
  - Off label use [Unknown]
  - Intentional product use issue [Unknown]
  - Off label use [Unknown]

NARRATIVE: CASE EVENT DATE: 20180101
